FAERS Safety Report 5722786-6 (Version None)
Quarter: 2008Q2

REPORT INFORMATION
  Report Type: 
  Country: None (occurrence: None)
  Receive Date: 20080429
  Receipt Date: 20080211
  Transmission Date: 20081010
  Serious: No
  Sender: FDA-Public Use
  Company Number: US-ASTRAZENECA-2008UW01627

PATIENT

DRUGS (1)
  1. NEXIUM [Suspect]
     Indication: ULCER
     Route: 048
     Dates: start: 20071201

REACTIONS (3)
  - ABDOMINAL PAIN UPPER [None]
  - DRUG INEFFECTIVE [None]
  - DYSPEPSIA [None]
